FAERS Safety Report 6738996-5 (Version None)
Quarter: 2010Q2

REPORT INFORMATION
  Report Type: 
  Country: None (occurrence: None)
  Receive Date: 20100524
  Receipt Date: 20100524
  Transmission Date: 20101027
  Serious: Yes (Other)
  Sender: FDA-Public Use
  Company Number: None

PATIENT
  Age: 16 Year
  Sex: Male
  Weight: 72.5755 kg

DRUGS (1)
  1. SOLODYN [Suspect]
     Indication: ACNE
     Dosage: 1 TABLRT ONCE A DAY PO
     Route: 048
     Dates: start: 20050101, end: 20100518

REACTIONS (2)
  - ALOPECIA [None]
  - SKIN STRIAE [None]
